FAERS Safety Report 8407477-5 (Version None)
Quarter: 2012Q2

REPORT INFORMATION
  Report Type: 
  Country: None (occurrence: None)
  Receive Date: 20120604
  Receipt Date: 20120529
  Transmission Date: 20120825
  Serious: Yes (Hospitalization, Other)
  Sender: FDA-Public Use
  Company Number: FR-PFIZER INC-2012128471

PATIENT
  Age: 10 Year
  Sex: Female

DRUGS (2)
  1. IBUPROFEN (ADVIL) [Suspect]
     Indication: PYREXIA
     Dosage: UNK
     Route: 048
     Dates: start: 20120407, end: 20120407
  2. PARACETAMOL [Concomitant]
     Route: 048

REACTIONS (7)
  - HERPES SIMPLEX [None]
  - VOMITING [None]
  - ERYTHEMA MULTIFORME [None]
  - CHOLESTASIS [None]
  - DRUG ERUPTION [None]
  - DECREASED APPETITE [None]
  - HEPATITIS [None]
